FAERS Safety Report 25682601 (Version 2)
Quarter: 2025Q3

REPORT INFORMATION
  Report Type: Report from Study
  Country: US (occurrence: US)
  Receive Date: 20250814
  Receipt Date: 20250826
  Transmission Date: 20251020
  Serious: Yes (Death)
  Sender: OTSUKA
  Company Number: US-MMM-Otsuka-DEW1JZQ6

PATIENT
  Sex: Female

DRUGS (1)
  1. TOLVAPTAN [Suspect]
     Active Substance: TOLVAPTAN
     Indication: Congenital cystic kidney disease
     Route: 065

REACTIONS (1)
  - Cardiac disorder [Fatal]
